FAERS Safety Report 9056029 (Version 1)
Quarter: 2013Q1

REPORT INFORMATION
  Report Type: Spontaneous
  Country: US (occurrence: US)
  Receive Date: 20130205
  Receipt Date: 20130205
  Transmission Date: 20140127
  Serious: Yes (Other)
  Sender: FDA-Public Use
  Company Number: PHEH2013US002822

PATIENT
  Sex: Male

DRUGS (1)
  1. EVEROLIMUS [Suspect]
     Indication: RENAL CELL CARCINOMA
     Dosage: 10 MG, QD
     Route: 048
     Dates: start: 201212, end: 20130103

REACTIONS (4)
  - Cardiomyopathy [Recovering/Resolving]
  - Pericardial effusion [Recovering/Resolving]
  - Dyspnoea [Recovering/Resolving]
  - Oedema [Recovering/Resolving]
